FAERS Safety Report 5730195-9 (Version None)
Quarter: 2008Q2

REPORT INFORMATION
  Report Type: 
  Country: None (occurrence: None)
  Receive Date: 20080430
  Receipt Date: 20080220
  Transmission Date: 20081010
  Serious: No
  Sender: FDA-Public Use
  Company Number: PHEH2008US02203

PATIENT
  Sex: Female

DRUGS (1)
  1. TYZEKA [Suspect]
     Dates: start: 20070501

REACTIONS (1)
  - DRUG EXPOSURE DURING PREGNANCY [None]
